FAERS Safety Report 17391515 (Version 1)
Quarter: 2020Q1

REPORT INFORMATION
  Report Type: Spontaneous
  Country: US (occurrence: US)
  Receive Date: 20200207
  Receipt Date: 20200207
  Transmission Date: 20200409
  Serious: No
  Sender: FDA-Public Use
  Company Number: US-ASTRAZENECA-2020SE06593

PATIENT
  Sex: Male
  Weight: 96.2 kg

DRUGS (2)
  1. INSULIN [Suspect]
     Active Substance: INSULIN NOS
     Route: 065
  2. BYDUREON BCISE [Suspect]
     Active Substance: EXENATIDE
     Dosage: 2.0MG UNKNOWN
     Route: 058

REACTIONS (6)
  - Product container issue [Unknown]
  - Weight decreased [Unknown]
  - Incorrect dose administered by device [Unknown]
  - Device issue [Unknown]
  - Injection site induration [Unknown]
  - Wrong technique in device usage process [Unknown]
